FAERS Safety Report 8486062-3 (Version None)
Quarter: 2012Q3

REPORT INFORMATION
  Report Type: 
  Country: None (occurrence: None)
  Receive Date: 20120703
  Receipt Date: 20120618
  Transmission Date: 20120928
  Serious: Yes (Other)
  Sender: FDA-Public Use
  Company Number: NL-WATSON-2012-10898

PATIENT
  Age: 12 Year
  Sex: Female

DRUGS (1)
  1. VALPROATE SODIUM [Suspect]
     Indication: EPILEPSY
     Dosage: 30 MG/KG, DAILY
     Route: 065

REACTIONS (5)
  - HALLUCINATION [None]
  - DRUG WITHDRAWAL SYNDROME [None]
  - AGITATION [None]
  - TACHYPHRENIA [None]
  - PSYCHOTIC BEHAVIOUR [None]
